FAERS Safety Report 9645621 (Version 3)
Quarter: 2013Q4

REPORT INFORMATION
  Report Type: Spontaneous
  Country: JP (occurrence: JP)
  Receive Date: 20131025
  Receipt Date: 20131119
  Transmission Date: 20140711
  Serious: Yes (Other)
  Sender: FDA-Public Use
  Company Number: JP-PFIZER INC-2013304170

PATIENT
  Age: 41 Year
  Sex: Female

DRUGS (3)
  1. EPIRUBICIN HYDROCHLORIDE [Suspect]
     Indication: ENDOMETRIAL STROMAL SARCOMA
     Dosage: 50 MG/M2, UNK
  2. CISPLATIN [Suspect]
     Indication: ENDOMETRIAL STROMAL SARCOMA
     Dosage: 50 MG/M2, UNK
  3. IFOSFAMIDE [Suspect]
     Indication: ENDOMETRIAL STROMAL SARCOMA
     Dosage: 1500 MG/M2, UNK

REACTIONS (1)
  - Renal impairment [Unknown]
